FAERS Safety Report 17393901 (Version 3)
Quarter: 2020Q1

REPORT INFORMATION
  Report Type: Spontaneous
  Country: JP (occurrence: JP)
  Receive Date: 20200210
  Receipt Date: 20200330
  Transmission Date: 20200409
  Serious: Yes (Hospitalization, Other)
  Sender: FDA-Public Use
  Company Number: JP-UCBSA-2020004980

PATIENT
  Age: 86 Year
  Sex: Female

DRUGS (4)
  1. FUROSEMIDE. [Concomitant]
     Active Substance: FUROSEMIDE
     Indication: PRODUCT USED FOR UNKNOWN INDICATION
     Dosage: UNK
  2. NEUPRO [Suspect]
     Active Substance: ROTIGOTINE
     Indication: OFF LABEL USE
     Dosage: 0.5 MG/24 HR
     Route: 062
     Dates: start: 20200129, end: 20200129
  3. NEUPRO [Suspect]
     Active Substance: ROTIGOTINE
     Indication: DYSKINESIA
     Dosage: 1 MG/24 HR
     Route: 062
     Dates: end: 20200128
  4. DIGOXIN. [Concomitant]
     Active Substance: DIGOXIN
     Indication: PRODUCT USED FOR UNKNOWN INDICATION
     Dosage: UNK

REACTIONS (5)
  - Blood creatinine increased [Unknown]
  - Cardiac failure congestive [Recovering/Resolving]
  - Hepatic function abnormal [Unknown]
  - Off label use [Unknown]
  - Pleural effusion [Recovering/Resolving]

NARRATIVE: CASE EVENT DATE: 20200128
